FAERS Safety Report 6084220-9 (Version None)
Quarter: 2009Q1

REPORT INFORMATION
  Report Type: 
  Country: None (occurrence: None)
  Receive Date: 20090219
  Receipt Date: 20090210
  Transmission Date: 20090719
  Serious: Yes (Hospitalization)
  Sender: FDA-Public Use
  Company Number: IE-ROCHE-583406

PATIENT
  Age: 70 Year
  Sex: Female

DRUGS (2)
  1. MIRCERA [Suspect]
     Indication: RENAL FAILURE
     Route: 058
     Dates: start: 20080313
  2. MIRCERA [Suspect]
     Dosage: DOSE DECREASED.
     Route: 058

REACTIONS (2)
  - HAEMOGLOBIN DECREASED [None]
  - LOWER RESPIRATORY TRACT INFECTION [None]
